FAERS Safety Report 7770213-X (Version None)
Quarter: 2011Q3

REPORT INFORMATION
  Report Type: 
  Country: None (occurrence: None)
  Receive Date: 20110922
  Receipt Date: 20100929
  Transmission Date: 20111222
  Serious: No
  Sender: FDA-Public Use
  Company Number: US-ASTRAZENECA-2010SE45796

PATIENT
  Age: 50 Year
  Sex: Male
  Weight: 69.9 kg

DRUGS (3)
  1. SEROQUEL XR [Suspect]
     Route: 048
     Dates: start: 20100801, end: 20100901
  2. SEROQUEL XR [Suspect]
     Indication: BIPOLAR I DISORDER
     Route: 048
     Dates: start: 20100801, end: 20100801
  3. SEROQUEL XR [Suspect]
     Route: 048
     Dates: start: 20100901

REACTIONS (3)
  - ASTHENIA [None]
  - HYPERSOMNIA [None]
  - SOMNOLENCE [None]
